FAERS Safety Report 8816208 (Version 2)
Quarter: 2015Q2

REPORT INFORMATION
  Report Type: Spontaneous
  Country: US (occurrence: US)
  Receive Date: 20120929
  Receipt Date: 20150513
  Transmission Date: 20150821
  Serious: No
  Sender: FDA-Public Use
  Company Number: US-ASTRAZENECA-2012SE72091

PATIENT
  Age: 62 Year
  Sex: Female

DRUGS (7)
  1. NONE [Concomitant]
     Active Substance: UNSPECIFIED INGREDIENT
  2. LEXAPRO [Concomitant]
     Active Substance: ESCITALOPRAM OXALATE
  3. METOPROLOL [Concomitant]
     Active Substance: METOPROLOL
  4. LASIC [Concomitant]
  5. TOPROL XL [Suspect]
     Active Substance: METOPROLOL SUCCINATE
     Route: 048
  6. LISINOPRIL. [Suspect]
     Active Substance: LISINOPRIL
     Route: 048
  7. CRESTOR [Suspect]
     Active Substance: ROSUVASTATIN CALCIUM
     Indication: BLOOD CHOLESTEROL INCREASED
     Route: 048

REACTIONS (3)
  - Malaise [Unknown]
  - Muscle spasms [Unknown]
  - Drug hypersensitivity [Unknown]
